FAERS Safety Report 5423193-6 (Version None)
Quarter: 2007Q3

REPORT INFORMATION
  Report Type: 
  Country: None (occurrence: None)
  Receive Date: 20070730
  Receipt Date: 20070130
  Transmission Date: 20080115
  Serious: Yes (Other)
  Sender: FDA-Public Use
  Company Number: 200616942BWH

PATIENT

DRUGS (4)
  1. AVELOX [Suspect]
     Indication: PNEUMONIA
     Dosage: ORAL
     Route: 048
  2. ADVAIR DISKUS 100/50 [Concomitant]
  3. WELCHOL [Concomitant]
  4. FAMVIR [Concomitant]

REACTIONS (4)
  - ABDOMINAL PAIN [None]
  - LIVER FUNCTION TEST ABNORMAL [None]
  - VOMITING [None]
  - WHITE BLOOD CELL COUNT INCREASED [None]
